FAERS Safety Report 5986867-4 (Version None)
Quarter: 2008Q4

REPORT INFORMATION
  Report Type: 
  Country: None (occurrence: None)
  Receive Date: 20081209
  Receipt Date: 20080801
  Transmission Date: 20090506
  Serious: No
  Sender: FDA-Public Use
  Company Number: US-BAYER-200814517BCC

PATIENT
  Sex: Female

DRUGS (2)
  1. ALEVE [Suspect]
     Dosage: UNIT DOSE: 220 MG
  2. ALEVE [Suspect]
     Dosage: UNIT DOSE: 220 MG

REACTIONS (1)
  - NO ADVERSE EVENT [None]
